FAERS Safety Report 8171770-4 (Version None)
Quarter: 2012Q1

REPORT INFORMATION
  Report Type: 
  Country: None (occurrence: None)
  Receive Date: 20120228
  Receipt Date: 20120222
  Transmission Date: 20120608
  Serious: Yes (Death)
  Sender: FDA-Public Use
  Company Number: US-GLAXOSMITHKLINE-A0963195A

PATIENT
  Age: 80 Year
  Sex: Female

DRUGS (3)
  1. ADVAIR DISKUS 100/50 [Suspect]
     Route: 065
     Dates: start: 20100217
  2. ADVAIR DISKUS 100/50 [Suspect]
     Route: 065
     Dates: start: 20100217
  3. LANOXIN [Suspect]
     Dosage: .125MG UNKNOWN
     Route: 065
     Dates: start: 20100217

REACTIONS (1)
  - DEATH [None]
